FAERS Safety Report 20868911 (Version 1)
Quarter: 2022Q2

REPORT INFORMATION
  Report Type: Report from Study
  Country: US (occurrence: US)
  Receive Date: 20220524
  Receipt Date: 20220524
  Transmission Date: 20220721
  Serious: No
  Sender: FDA-Public Use
  Company Number: US-NOVARTISTESTPH-NVSC2022US118601

PATIENT
  Age: 39 Year
  Sex: Female

DRUGS (1)
  1. COSENTYX [Suspect]
     Active Substance: SECUKINUMAB
     Indication: Psoriasis
     Dosage: 150 MG, QMO, (ROUGHLY 2016 (BEENON FOR APPROXIMATELY 6 YEARS)
     Route: 065
     Dates: start: 2016

REACTIONS (3)
  - Sinusitis [Recovered/Resolved]
  - Ocular discomfort [Recovered/Resolved]
  - Ear discomfort [Recovered/Resolved]
